FAERS Safety Report 6503010-3 (Version None)
Quarter: 2009Q4

REPORT INFORMATION
  Report Type: 
  Country: None (occurrence: None)
  Receive Date: 20091201
  Receipt Date: 20090312
  Transmission Date: 20100525
  Serious: Yes (Other)
  Sender: FDA-Public Use
  Company Number: WAES 0903USA03804

PATIENT
  Sex: Female

DRUGS (2)
  1. CLINORIL [Suspect]
     Dosage: PO
     Route: 048
  2. ALTACE [Suspect]

REACTIONS (1)
  - PANCREATITIS ACUTE [None]
